FAERS Safety Report 10250846 (Version 1)
Quarter: 2014Q2

REPORT INFORMATION
  Report Type: Spontaneous
  Country: US (occurrence: US)
  Receive Date: 20140620
  Receipt Date: 20140620
  Transmission Date: 20141212
  Serious: Yes (Hospitalization)
  Sender: FDA-Public Use
  Company Number: US-BAXTER-2014BAX030795

PATIENT
  Age: 71 Year
  Sex: Male

DRUGS (7)
  1. VANCOMYCIN INJECTION, USP [Suspect]
     Indication: POSTOPERATIVE WOUND INFECTION
     Dosage: ONE MONTH PRIOR TO ADMISSION
     Route: 042
  2. GABAPENTIN [Suspect]
     Indication: DIABETIC NEUROPATHY
     Route: 065
  3. ASPIRIN [Concomitant]
     Indication: PRODUCT USED FOR UNKNOWN INDICATION
     Route: 065
  4. ATENOLOL [Concomitant]
     Indication: PRODUCT USED FOR UNKNOWN INDICATION
     Route: 065
  5. ATORVASTATIN [Concomitant]
     Indication: PRODUCT USED FOR UNKNOWN INDICATION
     Route: 065
  6. CALCIUM ACETATE [Concomitant]
     Indication: PRODUCT USED FOR UNKNOWN INDICATION
     Route: 065
  7. INSULIN [Concomitant]
     Indication: TYPE 2 DIABETES MELLITUS
     Route: 065

REACTIONS (1)
  - Mental status changes [Recovered/Resolved]
